FAERS Safety Report 8000403-2 (Version None)
Quarter: 2011Q4

REPORT INFORMATION
  Report Type: 
  Country: None (occurrence: None)
  Receive Date: 20111222
  Receipt Date: 20101111
  Transmission Date: 20120403
  Serious: No
  Sender: FDA-Public Use
  Company Number: US-BRISTOL-MYERS SQUIBB COMPANY-15281330

PATIENT
  Age: 77 Year
  Sex: Female

DRUGS (8)
  1. PRAVACHOL [Suspect]
  2. COLESTIPOL HYDROCHLORIDE [Suspect]
  3. RED YEAST RICE [Suspect]
  4. AGGRENOX [Suspect]
  5. LOVASTATIN [Suspect]
  6. CRESTOR [Suspect]
  7. LIPITOR [Suspect]
  8. SIMVASTATIN [Suspect]

REACTIONS (8)
  - MYALGIA [None]
  - CHEST PAIN [None]
  - MUSCLE SPASMS [None]
  - MALAISE [None]
  - DRUG INEFFECTIVE [None]
  - BLOOD CHOLESTEROL INCREASED [None]
  - ABDOMINAL PAIN UPPER [None]
  - MOVEMENT DISORDER [None]
